FAERS Safety Report 5174992-X (Version None)
Quarter: 2006Q4

REPORT INFORMATION
  Report Type: 
  Country: None (occurrence: None)
  Receive Date: 20061006
  Receipt Date: 20061127
  Transmission Date: 20070319
  Serious: Yes (Other)
  Sender: FDA-Public Use
  Company Number: 2006147491

PATIENT
  Age: 60 Year
  Sex: Male

DRUGS (4)
  1. LIPITOR [Suspect]
     Dosage: 20 MG, ORAL, 10 MG
     Route: 048
  2. PLAVIX [Concomitant]
  3. CONCOR [Concomitant]
  4. DISPRIN [Concomitant]

REACTIONS (1)
  - MYOCARDIAL INFARCTION [None]
